FAERS Safety Report 24792897 (Version 2)
Quarter: 2025Q1

REPORT INFORMATION
  Report Type: Spontaneous
  Country: US (occurrence: US)
  Receive Date: 20241231
  Receipt Date: 20250108
  Transmission Date: 20250408
  Serious: No
  Sender: ELI LILLY AND COMPANY
  Company Number: US-ELI_LILLY_AND_COMPANY-US202412019490

PATIENT
  Age: 86 Year
  Sex: Female

DRUGS (13)
  1. HUMALOG [Suspect]
     Active Substance: INSULIN LISPRO
     Indication: Type 1 diabetes mellitus
     Route: 058
     Dates: start: 2022
  2. HUMALOG [Suspect]
     Active Substance: INSULIN LISPRO
     Indication: Type 1 diabetes mellitus
     Route: 058
     Dates: start: 2022
  3. HUMALOG [Suspect]
     Active Substance: INSULIN LISPRO
     Indication: Type 1 diabetes mellitus
     Route: 058
     Dates: start: 2022
  4. HUMALOG [Suspect]
     Active Substance: INSULIN LISPRO
     Indication: Type 1 diabetes mellitus
     Route: 058
     Dates: start: 2022
  5. HUMALOG [Suspect]
     Active Substance: INSULIN LISPRO
     Indication: Type 1 diabetes mellitus
     Route: 058
     Dates: start: 2022
  6. HUMALOG [Suspect]
     Active Substance: INSULIN LISPRO
     Route: 058
     Dates: start: 2022
  7. HUMALOG [Suspect]
     Active Substance: INSULIN LISPRO
     Route: 058
     Dates: start: 2022
  8. HUMALOG [Suspect]
     Active Substance: INSULIN LISPRO
     Route: 058
  9. HUMALOG [Suspect]
     Active Substance: INSULIN LISPRO
     Route: 058
  10. HUMALOG [Suspect]
     Active Substance: INSULIN LISPRO
     Route: 058
  11. HUMALOG [Suspect]
     Active Substance: INSULIN LISPRO
     Route: 058
  12. HUMALOG [Suspect]
     Active Substance: INSULIN LISPRO
     Route: 058
  13. LANTUS [Concomitant]
     Active Substance: INSULIN GLARGINE
     Indication: Type 1 diabetes mellitus
     Dates: start: 2022

REACTIONS (5)
  - Diabetes mellitus inadequate control [Unknown]
  - Blood glucose increased [Unknown]
  - Incorrect dose administered [Unknown]
  - Macular degeneration [Unknown]
  - Blood glucose decreased [Unknown]
